FAERS Safety Report 11847952 (Version 2)
Quarter: 2016Q1

REPORT INFORMATION
  Report Type: Spontaneous
  Country: US (occurrence: US)
  Receive Date: 20151217
  Receipt Date: 20160201
  Transmission Date: 20160526
  Serious: Yes (Death)
  Sender: FDA-Public Use
  Company Number: US-CELGENE-USA-2015123641

PATIENT
  Age: 65 Year
  Sex: Male

DRUGS (2)
  1. ABRAXANE [Suspect]
     Active Substance: PACLITAXEL
     Indication: LEIOMYOSARCOMA METASTATIC
     Dosage: 200 MILLIGRAM
     Route: 041
     Dates: start: 20150427, end: 20150504
  2. GEMZAR [Concomitant]
     Active Substance: GEMCITABINE HYDROCHLORIDE
     Indication: PRODUCT USED FOR UNKNOWN INDICATION
     Dosage: 1590 MILLIGRAM
     Route: 041
     Dates: start: 20150427, end: 20150504

REACTIONS (1)
  - Leiomyosarcoma metastatic [Fatal]

NARRATIVE: CASE EVENT DATE: 20151010
